FAERS Safety Report 16081018 (Version 1)
Quarter: 2019Q1

REPORT INFORMATION
  Report Type: Spontaneous
  Country: GB (occurrence: GB)
  Receive Date: 20190316
  Receipt Date: 20190316
  Transmission Date: 20190418
  Serious: Yes (Death, Hospitalization, Other)
  Sender: FDA-Public Use
  Company Number: GB-DRREDDYS-GER/UKI/11/0018197

PATIENT
  Age: 19 Year
  Sex: Female

DRUGS (5)
  1. AMOXICILLIN. [Interacting]
     Active Substance: AMOXICILLIN
     Indication: EAR INFECTION
     Route: 065
  2. DOMPERIDONE [Interacting]
     Active Substance: DOMPERIDONE
     Indication: PRODUCT USED FOR UNKNOWN INDICATION
     Route: 065
  3. OMEPRAZOLE. [Suspect]
     Active Substance: OMEPRAZOLE
     Indication: ILL-DEFINED DISORDER
     Route: 065
  4. SILDENAFIL. [Interacting]
     Active Substance: SILDENAFIL
     Indication: PULMONARY ARTERIAL HYPERTENSION
     Route: 065
  5. SITAXENTAN [Interacting]
     Active Substance: SITAXENTAN
     Indication: PULMONARY ARTERIAL HYPERTENSION
     Route: 065

REACTIONS (7)
  - Jaundice [Fatal]
  - Hepatic necrosis [Fatal]
  - Liver function test abnormal [Unknown]
  - Acute hepatic failure [Fatal]
  - Brain oedema [Fatal]
  - Drug interaction [Fatal]
  - Coagulopathy [Fatal]
